FAERS Safety Report 4974397-8 (Version None)
Quarter: 2006Q2

REPORT INFORMATION
  Report Type: 
  Country: None (occurrence: None)
  Receive Date: 20060417
  Receipt Date: 20040601
  Transmission Date: 20061013
  Serious: Yes (Other)
  Sender: FDA-Public Use
  Company Number: DE-BRISTOL-MYERS SQUIBB COMPANY-13338439

PATIENT
  Sex: Male
  Weight: 70 kg

DRUGS (16)
  1. SUSTIVA [Suspect]
     Indication: HIV INFECTION
     Dates: start: 19981201
  2. ZERIT [Suspect]
     Indication: HIV INFECTION
     Dates: start: 19981201
  3. VIDEX [Suspect]
     Indication: HIV INFECTION
     Dates: start: 19930101, end: 19930401
  4. ZIDOVUDINE [Suspect]
     Indication: HIV INFECTION
     Dosage: THERAPY STOPPED IN APR-1995 AND RESTARTED IN JUN-2001 AND APR-2004.
     Dates: start: 19910701
  5. ZALCITABINE [Suspect]
     Indication: HIV INFECTION
     Dosage: THERAPY STOPPED IN APR-1995 AND RESTARTED IN JUN-1996.
     Dates: start: 19930401, end: 19970601
  6. LAMIVUDINE [Suspect]
     Indication: HIV INFECTION
     Dosage: STOPPED IN JUN-1996 AND RESTARTED IN DEC-1998, JUN-2001 AND APR-2004.
     Dates: start: 19950401
  7. INDINIVIR SULFATE [Suspect]
     Indication: HIV INFECTION
     Dates: start: 19960601, end: 19970601
  8. LOPINAVIR + RITONAVIR [Suspect]
     Indication: HIV INFECTION
     Dates: start: 20010601
  9. SAQUINAVIR [Suspect]
     Indication: HIV INFECTION
     Dates: start: 20010601
  10. TENOFOVIR [Suspect]
     Indication: HIV INFECTION
     Dates: start: 20040401
  11. TMC114 [Suspect]
     Indication: HIV INFECTION
     Dates: start: 20040401
  12. FLUCONAZOLE [Concomitant]
     Indication: CRYPTOCOCCOSIS
     Route: 042
     Dates: start: 19981101
  13. AMPHOTERICIN B [Concomitant]
     Indication: CRYPTOCOCCOSIS
     Route: 042
     Dates: start: 19981101
  14. FLUCYTOSINE [Concomitant]
     Indication: CRYPTOCOCCOSIS
     Route: 042
     Dates: start: 19981101
  15. FLUCONAZOLE [Concomitant]
     Dosage: AFTER INTRAVENOUS THERAPY
     Route: 048
  16. LEVOFLOXACIN [Concomitant]
     Indication: BACTERIAL INFECTION
     Dates: start: 20040401

REACTIONS (8)
  - BACTERIAL INFECTION [None]
  - CRYPTOCOCCOSIS [None]
  - CYTOMEGALOVIRUS COLITIS [None]
  - DRUG RESISTANCE [None]
  - GENERAL PHYSICAL HEALTH DETERIORATION [None]
  - HEADACHE [None]
  - PNEUMOCYSTIS JIROVECI PNEUMONIA [None]
  - PYREXIA [None]
